FAERS Safety Report 5109867-5 (Version None)
Quarter: 2006Q3

REPORT INFORMATION
  Report Type: 
  Country: None (occurrence: None)
  Receive Date: 20060919
  Receipt Date: 20060919
  Transmission Date: 20061208
  Serious: Yes (Other)
  Sender: FDA-Public Use
  Company Number: None

PATIENT
  Sex: Male

DRUGS (1)
  1. HIBICLENS [Suspect]
     Indication: LOCAL ANTIBACTERIAL THERAPY
     Dosage: TOPICAL 060
     Route: 061
     Dates: end: 20060831

REACTIONS (2)
  - DRUG ADMINISTRATION ERROR [None]
  - EYE DISORDER [None]
